FAERS Safety Report 4286489-X (Version None)
Quarter: 2004Q1

REPORT INFORMATION
  Report Type: 
  Country: None (occurrence: None)
  Receive Date: 20040204
  Receipt Date: 20040127
  Transmission Date: 20041129
  Serious: Yes (Death)
  Sender: FDA-Public Use
  Company Number: USA-2004-0012641

PATIENT
  Age: 49 Year
  Sex: Male
  Weight: 91.6 kg

DRUGS (7)
  1. OXYCODONE HCL [Suspect]
  2. DIPHENHYDRAMINE HCL [Suspect]
  3. VENLAFAXINE HCL [Suspect]
  4. DOXYLAMINE SUCCINATE [Suspect]
  5. AMITRIPTYLINE HCL [Suspect]
  6. DEXTROMETHORPHAN HYDROBROMIDE [Suspect]
  7. CHLORPHENIRAMINE MALEATE [Suspect]

REACTIONS (8)
  - ACCIDENTAL OVERDOSE [None]
  - ARTERIOSCLEROSIS [None]
  - BRONCHOPNEUMONIA [None]
  - COMA [None]
  - CORONARY ARTERY ATHEROSCLEROSIS [None]
  - DRUG TOXICITY [None]
  - MULTIPLE DRUG OVERDOSE [None]
  - MYOCARDIAL FIBROSIS [None]
